FAERS Safety Report 4553020-0 (Version None)
Quarter: 2005Q1

REPORT INFORMATION
  Report Type: 
  Country: None (occurrence: None)
  Receive Date: 20050113
  Receipt Date: 20041217
  Transmission Date: 20050727
  Serious: No
  Sender: FDA-Public Use
  Company Number: 2005SE00034

PATIENT
  Sex: Female

DRUGS (1)
  1. XYLOCAINE [Suspect]
     Indication: LOCAL ANAESTHESIA
     Dates: start: 20040101, end: 20040101

REACTIONS (12)
  - ANAESTHETIC COMPLICATION [None]
  - CHEST DISCOMFORT [None]
  - DEAFNESS [None]
  - DIZZINESS [None]
  - EAR DISCOMFORT [None]
  - EAR DISORDER [None]
  - FEELING ABNORMAL [None]
  - HYPOAESTHESIA [None]
  - HYPOAESTHESIA ORAL [None]
  - PHARMACEUTICAL PRODUCT COMPLAINT [None]
  - PHARYNGEAL HYPOAESTHESIA [None]
  - SWOLLEN TONGUE [None]
